FAERS Safety Report 10402639 (Version 1)
Quarter: 2014Q3

REPORT INFORMATION
  Report Type: Spontaneous
  Country: US (occurrence: None)
  Receive Date: 20140821
  Receipt Date: 20140821
  Transmission Date: 20150326
  Serious: Yes (Other)
  Sender: FDA-Public Use
  Company Number: None

PATIENT
  Age: 33 Year
  Sex: Female
  Weight: 60.78 kg

DRUGS (1)
  1. CIPRO [Suspect]
     Active Substance: CIPROFLOXACIN HYDROCHLORIDE
     Indication: CYSTITIS
     Dosage: 1 PILL EVERY 12 HOURS, TWICE DAILY, TAKEN BY MOUTH
     Route: 048
     Dates: start: 20140725, end: 20140801

REACTIONS (7)
  - Tendon pain [None]
  - Abdominal pain [None]
  - Migraine [None]
  - Palpitations [None]
  - Anxiety [None]
  - Inflammation [None]
  - Arthralgia [None]

NARRATIVE: CASE EVENT DATE: 20140808
